FAERS Safety Report 8587709-3 (Version None)
Quarter: 2012Q3

REPORT INFORMATION
  Report Type: 
  Country: None (occurrence: None)
  Receive Date: 20120813
  Receipt Date: 20120806
  Transmission Date: 20120928
  Serious: Yes (Hospitalization, Other)
  Sender: FDA-Public Use
  Company Number: US-AMGEN-USASP2012047507

PATIENT
  Age: 64 Year
  Sex: Female

DRUGS (1)
  1. ENBREL [Suspect]
     Indication: RHEUMATOID ARTHRITIS
     Dosage: 50 MG, QWK
     Route: 058
     Dates: start: 20100301

REACTIONS (15)
  - BREAST CANCER METASTATIC [None]
  - LYMPHOEDEMA [None]
  - HIP ARTHROPLASTY [None]
  - ANIMAL SCRATCH [None]
  - UPPER LIMB FRACTURE [None]
  - MASS [None]
  - WOUND [None]
  - INFECTION [None]
  - FALL [None]
  - IMPAIRED HEALING [None]
  - WEIGHT DECREASED [None]
  - FRACTURED SACRUM [None]
  - BREAST CANCER [None]
  - MUSCULOSKELETAL DISORDER [None]
  - WHITE BLOOD CELL COUNT DECREASED [None]
